FAERS Safety Report 9258259 (Version 5)
Quarter: 2014Q1

REPORT INFORMATION
  Report Type: Spontaneous
  Country: US (occurrence: US)
  Receive Date: 20130426
  Receipt Date: 20140325
  Transmission Date: 20141002
  Serious: Yes (Disabling, Other)
  Sender: FDA-Public Use
  Company Number: US-ASTRAZENECA-2012SE86358

PATIENT
  Age: 58 Year
  Sex: Male
  Weight: 111.1 kg

DRUGS (17)
  1. NEXIUM [Suspect]
     Indication: GASTROOESOPHAGEAL REFLUX DISEASE
     Dosage: ONCE
     Route: 048
     Dates: start: 2000, end: 2010
  2. NEXIUM [Suspect]
     Indication: GASTROOESOPHAGEAL REFLUX DISEASE
     Route: 048
     Dates: start: 20010326
  3. NEXIUM [Suspect]
     Indication: GASTROOESOPHAGEAL REFLUX DISEASE
     Route: 048
     Dates: start: 200508, end: 201007
  4. NEXIUM [Suspect]
     Indication: GASTROOESOPHAGEAL REFLUX DISEASE
     Route: 048
     Dates: start: 20090726
  5. NEXIUM [Suspect]
     Indication: GASTROOESOPHAGEAL REFLUX DISEASE
     Route: 048
     Dates: start: 2010
  6. PRILOSEC [Suspect]
     Route: 048
  7. PRILOSEC [Suspect]
     Dosage: DAILY
     Route: 048
     Dates: start: 20110628
  8. TUMS [Concomitant]
  9. ROLAIDS [Concomitant]
  10. ZANTAC [Concomitant]
  11. PREVACID [Concomitant]
  12. BONIVA [Concomitant]
     Indication: BONE DENSITY DECREASED
     Dates: start: 2007
  13. ASPIRIN [Concomitant]
     Indication: HEADACHE
     Dates: start: 2007
  14. SULPHAMETHOXAZOLE [Concomitant]
     Route: 048
     Dates: start: 20010319
  15. ARCOXIA [Concomitant]
     Dosage: ONE TO TWO TIME MONTHLY
  16. FLEXERIL [Concomitant]
     Dates: start: 20110628
  17. OXYCODONE [Concomitant]
     Dates: start: 20110628

REACTIONS (20)
  - Spinal fracture [Unknown]
  - Upper limb fracture [Unknown]
  - Osteoporosis [Unknown]
  - Bone disorder [Unknown]
  - Humerus fracture [Unknown]
  - Osteopenia [Unknown]
  - Multiple fractures [Unknown]
  - Rib fracture [Unknown]
  - Sinusitis [Unknown]
  - Movement disorder [Unknown]
  - Fall [Unknown]
  - Spinal osteoarthritis [Unknown]
  - Weight increased [Unknown]
  - Mental disorder [Unknown]
  - Compression fracture [Unknown]
  - Scoliosis [Unknown]
  - Osteoarthritis [Unknown]
  - Insomnia [Unknown]
  - Depression [Unknown]
  - Foot fracture [Unknown]
